FAERS Safety Report 4635505-1 (Version None)
Quarter: 2005Q2

REPORT INFORMATION
  Report Type: 
  Country: None (occurrence: None)
  Receive Date: 20050413
  Receipt Date: 20050404
  Transmission Date: 20051028
  Serious: Yes (Hospitalization)
  Sender: FDA-Public Use
  Company Number: 2005054421

PATIENT
  Sex: Female
  Weight: 64 kg

DRUGS (4)
  1. LIPITOR [Suspect]
     Indication: BLOOD CHOLESTEROL INCREASED
     Dosage: (20 MG, 1 IN 1 D), ORAL
     Route: 048
  2. ETHANOL (ETHANOL) [Suspect]
     Indication: ILL-DEFINED DISORDER
     Dosage: ORAL
     Route: 048
     Dates: start: 20050329
  3. LISINOPRIL DIHYDRATE (LISINOPRIL DIHYDRATE) [Concomitant]
  4. TAURINE/THIOCTIC ACID/TOCOPHEROL (TAURINE, THIOCTIC ACID TOCOPHEROL) [Concomitant]

REACTIONS (9)
  - ABDOMINAL DISTENSION [None]
  - ALCOHOL USE [None]
  - BLOOD URINE [None]
  - FAMILY STRESS [None]
  - FEELING HOT [None]
  - INFECTION [None]
  - MEMORY IMPAIRMENT [None]
  - METABOLIC DISORDER [None]
  - WEIGHT DECREASED [None]
